FAERS Safety Report 22334194 (Version 2)
Quarter: 2023Q2

REPORT INFORMATION
  Report Type: Spontaneous
  Country: US (occurrence: US)
  Receive Date: 20230517
  Receipt Date: 20230601
  Transmission Date: 20230721
  Serious: Yes (Life-Threatening, Hospitalization)
  Sender: FDA-Public Use
  Company Number: US-TEVA-2023-US-2886737

PATIENT
  Age: 57 Year
  Sex: Female

DRUGS (1)
  1. ARIPIPRAZOLE [Suspect]
     Active Substance: ARIPIPRAZOLE
     Indication: Depression
     Route: 065

REACTIONS (4)
  - Eosinophilic myocarditis [Recovering/Resolving]
  - Ventricular tachycardia [Recovering/Resolving]
  - Atrioventricular block [Recovering/Resolving]
  - Atrioventricular block complete [Recovering/Resolving]
